FAERS Safety Report 7716095-3 (Version None)
Quarter: 2011Q3

REPORT INFORMATION
  Report Type: 
  Country: None (occurrence: None)
  Receive Date: 20110829
  Receipt Date: 20110822
  Transmission Date: 20111222
  Serious: Yes (Other)
  Sender: FDA-Public Use
  Company Number: US-GLAXOSMITHKLINE-A0936191A

PATIENT
  Age: 79 Year
  Sex: Female

DRUGS (1)
  1. PROMACTA [Suspect]
     Indication: IDIOPATHIC THROMBOCYTOPENIC PURPURA
     Dosage: 50MG PER DAY
     Dates: start: 20110427, end: 20110518

REACTIONS (4)
  - PHARYNGEAL OEDEMA [None]
  - PAIN [None]
  - RASH PRURITIC [None]
  - HYPERSENSITIVITY [None]
